FAERS Safety Report 12519024 (Version 2)
Quarter: 2016Q3

REPORT INFORMATION
  Report Type: Spontaneous
  Country: US (occurrence: US)
  Receive Date: 20160630
  Receipt Date: 20160826
  Transmission Date: 20161109
  Serious: Yes (Other)
  Sender: FDA-Public Use
  Company Number: PHEH2016US016000

PATIENT
  Age: 34 Year
  Sex: Female

DRUGS (1)
  1. GILENYA [Suspect]
     Active Substance: FINGOLIMOD HYDROCHLORIDE
     Indication: MULTIPLE SCLEROSIS
     Dosage: 0.5 MG, QD
     Route: 048
     Dates: start: 201507, end: 20160202

REACTIONS (9)
  - Vision blurred [Unknown]
  - Leukopenia [Recovered/Resolved]
  - Cough [Unknown]
  - CD4 lymphocytes decreased [Unknown]
  - Lymphopenia [Recovered/Resolved]
  - Immune reconstitution inflammatory syndrome [Unknown]
  - Visual field defect [Unknown]
  - Fatigue [Unknown]
  - CD8 lymphocytes decreased [Unknown]

NARRATIVE: CASE EVENT DATE: 20160127
